FAERS Safety Report 15201861 (Version 3)
Quarter: 2018Q3

REPORT INFORMATION
  Report Type: Spontaneous
  Country: TW (occurrence: TW)
  Receive Date: 20180726
  Receipt Date: 20180831
  Transmission Date: 20181010
  Serious: Yes (Hospitalization)
  Sender: FDA-Public Use
  Company Number: TW-CELGENEUS-TWN-20180605385

PATIENT
  Age: 78 Year
  Sex: Female
  Weight: 48 kg

DRUGS (21)
  1. VENETOCLAX. [Concomitant]
     Active Substance: VENETOCLAX
     Indication: ACUTE MYELOID LEUKAEMIA
     Route: 065
  2. FEBUXOSTAT. [Concomitant]
     Active Substance: FEBUXOSTAT
     Indication: PROPHYLAXIS
     Dosage: 80 MILLIGRAM
     Route: 048
     Dates: start: 20180523, end: 20180528
  3. AMIODARONE [Concomitant]
     Active Substance: AMIODARONE
     Indication: ARRHYTHMIA
     Dosage: 200 MILLIGRAM
     Route: 048
     Dates: start: 20180511, end: 20180626
  4. HYDROXYUREA. [Concomitant]
     Active Substance: HYDROXYUREA
     Indication: LEUKOCYTOSIS
     Dosage: 1500 MILLIGRAM
     Route: 048
     Dates: start: 20180512, end: 20180521
  5. ACETYLCYSTEINE. [Concomitant]
     Active Substance: ACETYLCYSTEINE
     Indication: PNEUMONIA
     Dosage: 1200 MILLIGRAM
     Route: 048
     Dates: start: 20180517, end: 20180620
  6. METOCLOPRAMIDE. [Concomitant]
     Active Substance: METOCLOPRAMIDE
     Indication: VOMITING
     Dosage: 10 MILLIGRAM
     Route: 041
     Dates: start: 20180524, end: 20180524
  7. ACETAMINOPHEN. [Concomitant]
     Active Substance: ACETAMINOPHEN
     Indication: PYREXIA
     Route: 065
  8. SILYMARIN [Concomitant]
     Active Substance: DIETARY SUPPLEMENT\HERBALS\MILK THISTLE
     Indication: HEPATIC FUNCTION ABNORMAL
     Dosage: 450 MILLIGRAM
     Route: 048
     Dates: start: 20180511, end: 20180521
  9. NEWPENEM [Concomitant]
     Indication: PNEUMONIA
     Dosage: 1.5 GRAM
     Route: 041
     Dates: start: 20180602
  10. BISOPROLOL [Concomitant]
     Active Substance: BISOPROLOL
     Indication: ARRHYTHMIA
     Dosage: 2.5 MILLIGRAM
     Route: 048
     Dates: start: 20180511
  11. ATORVASTATIN [Concomitant]
     Active Substance: ATORVASTATIN
     Indication: DYSLIPIDAEMIA
     Dosage: 10 MILLIGRAM
     Route: 048
     Dates: start: 20180511, end: 20180606
  12. METOCLOPRAMIDE. [Concomitant]
     Active Substance: METOCLOPRAMIDE
     Dosage: 10 MILLIGRAM
     Route: 041
     Dates: start: 20180602
  13. DEXTROMETHORPHAN [Concomitant]
     Active Substance: DEXTROMETHORPHAN
     Indication: PNEUMONIA
     Dosage: 1 CAPSULE
     Route: 048
     Dates: start: 20180514, end: 20180521
  14. NORMAL SALINE SOLUTION [Concomitant]
     Dosage: 30 MILLILITER
     Route: 041
     Dates: start: 20180523, end: 20180528
  15. RYTMONORM [Concomitant]
     Active Substance: PROPAFENONE
     Indication: ARRHYTHMIA
     Dosage: 300 MILLIGRAM
     Route: 048
     Dates: start: 20180511
  16. AZACITIDINE INJECTABLE [Suspect]
     Active Substance: AZACITIDINE
     Indication: ACUTE MYELOID LEUKAEMIA
     Dosage: 75 MILLIGRAM/SQ. METER
     Route: 058
     Dates: start: 20180524, end: 20180530
  17. NORMAL SALINE SOLUTION [Concomitant]
     Indication: PROPHYLAXIS
     Route: 041
     Dates: start: 20180523, end: 20180527
  18. DIMETHYLPOLYSILOXANE [Concomitant]
     Indication: PNEUMONIA
     Dosage: 120 MILLIGRAM
     Route: 048
     Dates: start: 20180511, end: 20180529
  19. LORAZEPAM. [Concomitant]
     Active Substance: LORAZEPAM
     Indication: INSOMNIA
     Dosage: .5 MILLIGRAM
     Route: 048
     Dates: start: 20180511, end: 20180621
  20. DYPHYLLINE [Concomitant]
     Active Substance: DYPHYLLINE
     Indication: PNEUMONIA
     Dosage: 300 MILLIGRAM
     Route: 048
     Dates: start: 20180519, end: 20180614
  21. DOMPERIDONE [Concomitant]
     Active Substance: DOMPERIDONE
     Indication: PROPHYLAXIS OF NAUSEA AND VOMITING
     Dosage: 30 MILLIGRAM
     Route: 048
     Dates: start: 20180606

REACTIONS (1)
  - Candiduria [Recovered/Resolved]

NARRATIVE: CASE EVENT DATE: 20180604
